FAERS Safety Report 6568467-0 (Version None)
Quarter: 2010Q1

REPORT INFORMATION
  Report Type: 
  Country: None (occurrence: None)
  Receive Date: 20100203
  Receipt Date: 20100129
  Transmission Date: 20100710
  Serious: Yes (Other)
  Sender: FDA-Public Use
  Company Number: A0842619A

PATIENT
  Age: 62 Year
  Sex: Male

DRUGS (8)
  1. AVODART [Suspect]
     Indication: PROSTATITIS
     Dosage: .5MG PER DAY
     Route: 048
     Dates: start: 20100101
  2. LABETALOL HCL [Concomitant]
  3. FLOMAX [Concomitant]
  4. LIPITOR [Concomitant]
  5. COZAAR [Concomitant]
  6. PROCARDIA XL [Concomitant]
  7. ELAVIL [Concomitant]
  8. LITHIUM [Concomitant]

REACTIONS (1)
  - INSOMNIA [None]
